FAERS Safety Report 20774812 (Version 1)
Quarter: 2022Q2

REPORT INFORMATION
  Report Type: Spontaneous
  Country: CA (occurrence: CA)
  Receive Date: 20220502
  Receipt Date: 20220502
  Transmission Date: 20220721
  Serious: Yes (Other)
  Sender: FDA-Public Use
  Company Number: CA-BAYER-2022A062665

PATIENT
  Age: 14 Year
  Sex: Female
  Weight: 45.351 kg

DRUGS (3)
  1. GADOBUTROL [Suspect]
     Active Substance: GADOBUTROL
     Indication: Magnetic resonance imaging
     Dosage: 5 ML, ONCE
     Route: 042
     Dates: start: 20220427, end: 20220427
  2. GADOBUTROL [Suspect]
     Active Substance: GADOBUTROL
     Indication: Haemorrhage
  3. GADOBUTROL [Suspect]
     Active Substance: GADOBUTROL
     Indication: Ovarian lesion excision

REACTIONS (3)
  - Anxiety [Not Recovered/Not Resolved]
  - Contrast media allergy [Not Recovered/Not Resolved]
  - Muscle twitching [Not Recovered/Not Resolved]

NARRATIVE: CASE EVENT DATE: 20220427
